FAERS Safety Report 23879729 (Version 1)
Quarter: 2024Q2

REPORT INFORMATION
  Report Type: Spontaneous
  Country: US (occurrence: None)
  Receive Date: 20240520
  Receipt Date: 20240520
  Transmission Date: 20240716
  Serious: No
  Sender: FDA-Public Use
  Company Number: None

PATIENT

DRUGS (1)
  1. ERGOCALCIFEROL [Suspect]
     Active Substance: ERGOCALCIFEROL

REACTIONS (4)
  - Wrong schedule [None]
  - Product prescribing error [None]
  - Transcription medication error [None]
  - Incorrect dose administered [None]
